FAERS Safety Report 7265664-6 (Version None)
Quarter: 2011Q1

REPORT INFORMATION
  Report Type: 
  Country: None (occurrence: None)
  Receive Date: 20110131
  Receipt Date: 20110126
  Transmission Date: 20110831
  Serious: Yes (Death)
  Sender: FDA-Public Use
  Company Number: DE-BAXTER-2010BH029665

PATIENT
  Age: 68 Year
  Sex: Male

DRUGS (4)
  1. PHYSIOSOL IN PLASTIC CONTAINER [Suspect]
     Indication: CARDIORENAL SYNDROME
     Route: 033
  2. EXTRANEAL [Suspect]
     Indication: CARDIORENAL SYNDROME
     Route: 033
  3. EXTRANEAL [Suspect]
     Indication: PERITONEAL DIALYSIS
     Route: 033
  4. PHYSIOSOL IN PLASTIC CONTAINER [Suspect]
     Indication: PERITONEAL DIALYSIS
     Route: 033

REACTIONS (1)
  - SUDDEN CARDIAC DEATH [None]
